FAERS Safety Report 7010681-4 (Version None)
Quarter: 2010Q3

REPORT INFORMATION
  Report Type: 
  Country: None (occurrence: None)
  Receive Date: 20100923
  Receipt Date: 20100913
  Transmission Date: 20110219
  Serious: Yes (Other)
  Sender: FDA-Public Use
  Company Number: US-JNJCH-2010021131

PATIENT
  Age: 52 Year
  Sex: Female
  Weight: 83.9 kg

DRUGS (1)
  1. SUDAFED PE DAY + NIGHT NASAL DECONGESTANT [Suspect]
     Indication: NASAL CONGESTION
     Dosage: TEXT:ONE FOUR TIMES
     Route: 048
     Dates: start: 20100910, end: 20100910

REACTIONS (4)
  - ABDOMINAL PAIN UPPER [None]
  - BLOOD PRESSURE INCREASED [None]
  - HEADACHE [None]
  - VOMITING [None]
